FAERS Safety Report 5130064-1 (Version None)
Quarter: 2006Q4

REPORT INFORMATION
  Report Type: 
  Country: None (occurrence: None)
  Receive Date: 20061018
  Receipt Date: 20060927
  Transmission Date: 20070319
  Serious: Yes (Hospitalization)
  Sender: FDA-Public Use
  Company Number: US-ABBOTT-06P-163-0345026-00

PATIENT
  Sex: Female

DRUGS (5)
  1. RITONAVIR SOFT GELATIN CAPSULES [Suspect]
     Indication: HIV INFECTION
     Route: 048
     Dates: start: 20050717, end: 20060423
  2. TMC114 (DARUNAVIR) [Concomitant]
     Indication: HIV INFECTION
     Route: 048
     Dates: start: 20050117, end: 20060423
  3. EPZICOM [Concomitant]
     Indication: HIV INFECTION
     Route: 048
     Dates: start: 20050608
  4. TENOFOVIR [Concomitant]
     Indication: HIV INFECTION
     Route: 048
     Dates: start: 20050608
  5. FUZEON [Concomitant]
     Indication: HIV INFECTION
     Route: 058
     Dates: start: 20050117

REACTIONS (2)
  - IMMUNE RECONSTITUTION SYNDROME [None]
  - PANCYTOPENIA [None]
